FAERS Safety Report 4280705-6 (Version None)
Quarter: 2004Q1

REPORT INFORMATION
  Report Type: 
  Country: None (occurrence: None)
  Receive Date: 20040129
  Receipt Date: 20031216
  Transmission Date: 20041129
  Serious: Yes (Other)
  Sender: FDA-Public Use
  Company Number: GB-BRISTOL-MYERS SQUIBB COMPANY-12460150

PATIENT
  Age: 49 Year
  Sex: Male
  Weight: 64 kg

DRUGS (3)
  1. SUSTIVA [Suspect]
     Indication: HIV INFECTION
     Route: 048
     Dates: start: 20030616, end: 20030707
  2. DIDANOSINE [Concomitant]
     Route: 048
     Dates: start: 20030616
  3. TENOFOVIR [Concomitant]
     Route: 048
     Dates: start: 20030716

REACTIONS (1)
  - VERTIGO [None]
